FAERS Safety Report 6192838-8 (Version None)
Quarter: 2009Q2

REPORT INFORMATION
  Report Type: 
  Country: None (occurrence: None)
  Receive Date: 20090518
  Receipt Date: 20090507
  Transmission Date: 20091009
  Serious: Yes (Other)
  Sender: FDA-Public Use
  Company Number: US-AVENTIS-200818665US

PATIENT
  Sex: Female

DRUGS (8)
  1. LANTUS [Suspect]
     Route: 058
     Dates: start: 19980101
  2. HUMALOG [Suspect]
     Route: 058
  3. SERTRALINE HCL [Concomitant]
  4. AMLODIPINE [Concomitant]
  5. CARVEDILOL [Concomitant]
     Dosage: DOSE: UNK
  6. TEMAZEPAM [Concomitant]
  7. SIMVASTATIN [Concomitant]
  8. PLAVIX [Concomitant]

REACTIONS (6)
  - BLOOD GLUCOSE DECREASED [None]
  - BLOOD GLUCOSE INCREASED [None]
  - DIABETES MELLITUS INADEQUATE CONTROL [None]
  - HYPERGLYCAEMIA [None]
  - HYPOGLYCAEMIA [None]
  - IMPAIRED DRIVING ABILITY [None]
